FAERS Safety Report 21723435 (Version 2)
Quarter: 2022Q4

REPORT INFORMATION
  Report Type: Spontaneous
  Country: US (occurrence: None)
  Receive Date: 20221213
  Receipt Date: 20221223
  Transmission Date: 20230112
  Serious: No
  Sender: FDA-Public Use
  Company Number: 2022A399031

PATIENT
  Age: 19201 Day
  Sex: Female
  Weight: 51.3 kg

DRUGS (1)
  1. LYNPARZA [Suspect]
     Active Substance: OLAPARIB
     Indication: Ovarian cancer metastatic
     Dosage: 150 MG, TWO TABLETS ORALLY TWICE A DAY
     Route: 048
     Dates: start: 20221129, end: 20221205

REACTIONS (3)
  - Dysphagia [Unknown]
  - Treatment noncompliance [Unknown]
  - Fatigue [Unknown]
